FAERS Safety Report 15894261 (Version 2)
Quarter: 2019Q1

REPORT INFORMATION
  Report Type: Spontaneous
  Country: US (occurrence: US)
  Receive Date: 20190131
  Receipt Date: 20190301
  Transmission Date: 20190417
  Serious: Yes (Hospitalization, Disabling)
  Sender: FDA-Public Use
  Company Number: US-EMD SERONO-9068504

PATIENT
  Age: 41 Year
  Sex: Male

DRUGS (3)
  1. REBIF [Suspect]
     Active Substance: INTERFERON BETA-1A
     Indication: MULTIPLE SCLEROSIS
     Route: 058
     Dates: start: 201308
  2. AMPYRA [Concomitant]
     Active Substance: DALFAMPRIDINE
     Indication: MULTIPLE SCLEROSIS
     Dosage: Q12 HOUR
     Dates: start: 201701
  3. REBIF [Suspect]
     Active Substance: INTERFERON BETA-1A
     Dosage: 0.5 MILLILITER
     Route: 058
     Dates: start: 201606

REACTIONS (1)
  - Anaplastic astrocytoma [Not Recovered/Not Resolved]

NARRATIVE: CASE EVENT DATE: 201808
